FAERS Safety Report 24156422 (Version 1)
Quarter: 2024Q3

REPORT INFORMATION
  Report Type: Spontaneous
  Country: PK (occurrence: PK)
  Receive Date: 20240731
  Receipt Date: 20240731
  Transmission Date: 20241017
  Serious: Yes (Death)
  Sender: PFIZER
  Company Number: PK-PFIZER INC-PV202300190475

PATIENT
  Age: 56 Year
  Sex: Female

DRUGS (3)
  1. IBRANCE [Suspect]
     Active Substance: PALBOCICLIB
     Indication: Breast cancer
     Dosage: 100MG, (3/1)WEEKS
     Route: 048
     Dates: start: 20230801
  2. IBRANCE [Suspect]
     Active Substance: PALBOCICLIB
     Dosage: 100 MG, 1X/DAY (21 DAYS ON)
     Route: 048
     Dates: start: 20230804
  3. AROMASIN [Concomitant]
     Active Substance: EXEMESTANE

REACTIONS (2)
  - Death [Fatal]
  - Neoplasm progression [Unknown]
